FAERS Safety Report 14013550 (Version 1)
Quarter: 2017Q3

REPORT INFORMATION
  Report Type: Spontaneous
  Country: US (occurrence: US)
  Receive Date: 20170926
  Receipt Date: 20170926
  Transmission Date: 20171128
  Serious: No
  Sender: FDA-Public Use
  Company Number: US-BAYER-2017-183033

PATIENT
  Age: 73 Year
  Sex: Female
  Weight: 57 kg

DRUGS (7)
  1. MULTIVITAMINS [Concomitant]
     Active Substance: VITAMINS
     Dosage: UNK
  2. BAYER LOW DOSE [Suspect]
     Active Substance: ASPIRIN
     Dosage: UNK
     Route: 048
  3. COQ10 [Concomitant]
     Active Substance: UBIDECARENONE
     Dosage: 1 DF, QD
  4. MIRALAX [Suspect]
     Active Substance: POLYETHYLENE GLYCOL 3350
     Dosage: 1 DF, UNK
     Route: 048
     Dates: start: 200003
  5. CALCIUM C [Concomitant]
     Dosage: 2 DF, QD
  6. VITAMIIN C [Concomitant]
     Active Substance: ASCORBIC ACID
     Dosage: 1 DF, QD
  7. BISOPROLOL AL [Concomitant]
     Dosage: UNK

REACTIONS (3)
  - Product use in unapproved indication [Unknown]
  - Product use issue [Unknown]
  - Drug effective for unapproved indication [Unknown]
